FAERS Safety Report 20695340 (Version 1)
Quarter: 2022Q2

REPORT INFORMATION
  Report Type: Report from Study
  Country: IN (occurrence: IN)
  Receive Date: 20220411
  Receipt Date: 20220411
  Transmission Date: 20220720
  Serious: Yes (Hospitalization, Other)
  Sender: FDA-Public Use
  Company Number: IN-NOVARTISPH-PHHY2018IN146865

PATIENT
  Age: 36 Year
  Sex: Female
  Weight: 64 kg

DRUGS (12)
  1. SIMULECT [Suspect]
     Active Substance: BASILIXIMAB
     Indication: Renal transplant
     Dosage: 20 MG, UNK
     Route: 042
     Dates: start: 20180920, end: 20180924
  2. RITUXIMAB [Suspect]
     Active Substance: RITUXIMAB
     Indication: Product used for unknown indication
     Dosage: 100 MG
     Route: 065
  3. CEFTAZIDIME [Concomitant]
     Active Substance: CEFTAZIDIME
     Indication: Product used for unknown indication
     Dosage: 1 G, QD (14DAYS)
     Route: 042
     Dates: start: 20180815
  4. ELDERVIT [Concomitant]
     Indication: Product used for unknown indication
     Dosage: 2 UNK, QW (POST HD)
     Route: 065
  5. SEVEL [Concomitant]
     Indication: Product used for unknown indication
     Dosage: UNK, TID
     Route: 065
  6. LUPI D3 [Concomitant]
     Indication: Product used for unknown indication
     Dosage: UNK, QW
     Route: 065
  7. SYSCAN [Concomitant]
     Indication: Product used for unknown indication
     Dosage: UNK, QW 13DAYS MORE
     Route: 065
  8. ROCALCITOL [Concomitant]
     Indication: Product used for unknown indication
     Dosage: UNK, QD
     Route: 065
  9. VANCOMYCIN [Concomitant]
     Active Substance: VANCOMYCIN
     Indication: Product used for unknown indication
     Dosage: 1G IN 100ML NS OVER 30MIN EVERY 4TH DAY POST HD TOTAL 4 DOSES
     Route: 042
     Dates: start: 20180815
  10. SUEZ [Concomitant]
     Indication: Product used for unknown indication
     Dosage: 1AMP IN 100ML NS
     Route: 065
  11. NEXIRON [Concomitant]
     Indication: Product used for unknown indication
     Dosage: 100MG IN 100ML NS
     Route: 065
  12. LACARNIT [Concomitant]
     Indication: Product used for unknown indication
     Dosage: 1 G, QW
     Route: 042

REACTIONS (9)
  - Kidney transplant rejection [Not Recovered/Not Resolved]
  - Complications of transplanted kidney [Not Recovered/Not Resolved]
  - Thrombotic microangiopathy [Unknown]
  - Renal cortical necrosis [Unknown]
  - Tubulointerstitial nephritis [Unknown]
  - Oedematous kidney [Unknown]
  - Glomerulonephritis [Unknown]
  - Escherichia urinary tract infection [Unknown]
  - Pyrexia [Recovered/Resolved]

NARRATIVE: CASE EVENT DATE: 20181029
